FAERS Safety Report 9241614 (Version 2)
Quarter: 2013Q2

REPORT INFORMATION
  Report Type: Report from Study
  Country: CA (occurrence: CA)
  Receive Date: 20130419
  Receipt Date: 20130510
  Transmission Date: 20140414
  Serious: Yes (Other)
  Sender: FDA-Public Use
  Company Number: PHHY2013CA037409

PATIENT
  Age: 63 Year
  Sex: Female

DRUGS (9)
  1. ACLASTA [Suspect]
     Indication: OSTEOPOROSIS
     Dosage: 5 MG, UNK
     Route: 042
     Dates: start: 20120716
  2. PREDNISONE [Concomitant]
  3. MICARDIS [Concomitant]
  4. ELTROXIN [Concomitant]
  5. CALCIUM [Concomitant]
  6. VITAMIN D [Concomitant]
  7. HCT 1 [Concomitant]
  8. T3 [Concomitant]
  9. CRESTOR [Concomitant]

REACTIONS (3)
  - Breast cancer recurrent [Not Recovered/Not Resolved]
  - Metastatic neoplasm [Not Recovered/Not Resolved]
  - Osteolysis [Not Recovered/Not Resolved]
